FAERS Safety Report 5763870-0 (Version None)
Quarter: 2008Q2

REPORT INFORMATION
  Report Type: 
  Country: None (occurrence: None)
  Receive Date: 20080606
  Receipt Date: 20080606
  Transmission Date: 20081010
  Serious: Yes (Death)
  Sender: FDA-Public Use
  Company Number: None

PATIENT
  Sex: Female
  Weight: 63.5036 kg

DRUGS (2)
  1. REMICADE [Suspect]
     Indication: CROHN'S DISEASE
     Dates: start: 20000101, end: 20020101
  2. REMICADE [Suspect]
     Indication: CROHN'S DISEASE
     Dates: start: 20020113, end: 20030101

REACTIONS (1)
  - MALIGNANT MELANOMA [None]
